FAERS Safety Report 5776481-8 (Version None)
Quarter: 2008Q2

REPORT INFORMATION
  Report Type: 
  Country: None (occurrence: None)
  Receive Date: 20080617
  Receipt Date: 20080617
  Transmission Date: 20081010
  Serious: Yes (Hospitalization)
  Sender: FDA-Public Use
  Company Number: None

PATIENT
  Sex: Male
  Weight: 22.8159 kg

DRUGS (11)
  1. IRINOTECAN HCL [Suspect]
     Indication: NEUROBLASTOMA
     Dosage: 1.04 MG D1,4,8,11 IV
     Route: 042
     Dates: start: 20080519, end: 20080523
  2. BORTEZOMIB [Suspect]
     Indication: NEUROBLASTOMA
     Dosage: 30 MG D1-5 OF 21D CYCL IV
     Route: 042
     Dates: start: 20080519
  3. BORTEZOMIB [Suspect]
     Indication: NEUROBLASTOMA
     Dosage: 30 MG D1-5 OF 21D CYCL IV
     Route: 042
     Dates: start: 20080522
  4. BORTEZOMIB [Suspect]
     Indication: NEUROBLASTOMA
     Dosage: 30 MG D1-5 OF 21D CYCL IV
     Route: 042
     Dates: start: 20080527
  5. BORTEZOMIB [Suspect]
     Indication: NEUROBLASTOMA
     Dosage: 30 MG D1-5 OF 21D CYCL IV
     Route: 042
     Dates: start: 20080530
  6. CEFPODOXIME PROXETIL [Concomitant]
  7. HEPARIN [Concomitant]
  8. IMODIUM [Concomitant]
  9. OXYCODON [Concomitant]
  10. POTASSIUM IODIDE [Concomitant]
  11. PRILOSEC [Concomitant]

REACTIONS (1)
  - NO ADVERSE EVENT [None]
